FAERS Safety Report 4851054-X (Version None)
Quarter: 2005Q4

REPORT INFORMATION
  Report Type: 
  Country: None (occurrence: None)
  Receive Date: 20051212
  Receipt Date: 20051201
  Transmission Date: 20060501
  Serious: Yes (Hospitalization)
  Sender: FDA-Public Use
  Company Number: US-JNJFOC-20051201467

PATIENT
  Sex: Male

DRUGS (2)
  1. RISPERDAL [Suspect]
     Route: 048
  2. ZOLOFT [Concomitant]

REACTIONS (4)
  - ASTHENIA [None]
  - BALANCE DISORDER [None]
  - ORAL INTAKE REDUCED [None]
  - RENAL DISORDER [None]
